FAERS Safety Report 5749143-0 (Version None)
Quarter: 2008Q2

REPORT INFORMATION
  Report Type: 
  Country: None (occurrence: None)
  Receive Date: 20080522
  Receipt Date: 20080506
  Transmission Date: 20081010
  Serious: Yes (Hospitalization)
  Sender: FDA-Public Use
  Company Number: GXKR2008JP04306

PATIENT
  Age: 62 Year
  Sex: Female

DRUGS (2)
  1. SERTRALINE [Suspect]
     Indication: DEPRESSION
     Dosage: 100 MG, QD,
  2. METHYLPHENIDATE (NGX)(METHYLPHENIDATE) UNKNOWN [Suspect]
     Indication: DEPRESSION
     Dosage: 10 MG, QD,

REACTIONS (4)
  - DRUG INTERACTION [None]
  - MYDRIASIS [None]
  - NO THERAPEUTIC RESPONSE [None]
  - SEROTONIN SYNDROME [None]
